FAERS Safety Report 6279206-5 (Version None)
Quarter: 2009Q3

REPORT INFORMATION
  Report Type: 
  Country: None (occurrence: None)
  Receive Date: 20090723
  Receipt Date: 20080717
  Transmission Date: 20100115
  Serious: No
  Sender: FDA-Public Use
  Company Number: US-AMGEN-KDL295674

PATIENT
  Sex: Male

DRUGS (10)
  1. PROCRIT [Suspect]
     Indication: ANAEMIA OF MALIGNANT DISEASE
     Dates: start: 20080616
  2. AVANDIA [Concomitant]
  3. CALCIUM CITRATE [Concomitant]
  4. VITAMINS [Concomitant]
  5. PRILOSEC [Concomitant]
     Dates: start: 20080616, end: 20080701
  6. ZOLADEX [Concomitant]
  7. ZOMETA [Concomitant]
  8. TAXOTERE [Concomitant]
  9. NEUPOGEN [Concomitant]
  10. UNSPECIFIED MEDICATION [Concomitant]

REACTIONS (3)
  - BLOOD GLUCOSE INCREASED [None]
  - DYSPNOEA [None]
  - PROSTATIC SPECIFIC ANTIGEN INCREASED [None]
